FAERS Safety Report 19413591 (Version 5)
Quarter: 2021Q3

REPORT INFORMATION
  Report Type: Report from Study
  Country: US (occurrence: US)
  Receive Date: 20210615
  Receipt Date: 20210823
  Transmission Date: 20211014
  Serious: No
  Sender: FDA-Public Use
  Company Number: NVSC2021US127273

PATIENT
  Sex: Male

DRUGS (4)
  1. AMIODARON [Concomitant]
     Active Substance: AMIODARONE
     Indication: PRODUCT USED FOR UNKNOWN INDICATION
     Dosage: UNK UNK, QD
     Route: 065
  2. ENTRESTO [Suspect]
     Active Substance: SACUBITRIL\VALSARTAN
     Indication: CARDIAC FAILURE CONGESTIVE
     Dosage: UNK
     Route: 048
     Dates: start: 202105
  3. ELIQUIS [Concomitant]
     Active Substance: APIXABAN
     Indication: ATRIAL FIBRILLATION
     Dosage: 5 MG
     Route: 065
  4. METOPROLOL. [Suspect]
     Active Substance: METOPROLOL
     Indication: PRODUCT USED FOR UNKNOWN INDICATION
     Dosage: UNK
     Route: 065

REACTIONS (8)
  - Wrong technique in product usage process [Unknown]
  - Ventricular extrasystoles [Recovering/Resolving]
  - Hypersomnia [Recovering/Resolving]
  - Weight increased [Unknown]
  - Blood pressure decreased [Recovering/Resolving]
  - Arthritis [Not Recovered/Not Resolved]
  - Hypertension [Recovering/Resolving]
  - Fatigue [Recovering/Resolving]
